FAERS Safety Report 4674601-X (Version None)
Quarter: 2005Q2

REPORT INFORMATION
  Report Type: 
  Country: None (occurrence: None)
  Receive Date: 20050526
  Receipt Date: 20030220
  Transmission Date: 20051028
  Serious: Yes (Disabling, Other)
  Sender: FDA-Public Use
  Company Number: PHHO2003PL02471

PATIENT
  Age: 63 Year
  Sex: Female
  Weight: 84 kg

DRUGS (10)
  1. CIPROFLOXACIN HYDROCHLORIDE [Concomitant]
     Indication: PYELONEPHRITIS
  2. TEGASEROD VS PLACEBO [Suspect]
     Indication: CONSTIPATION
     Dosage: 2 MG, BID
     Route: 048
     Dates: start: 20020506, end: 20030122
  3. ENALAPRIL MALEATE [Concomitant]
  4. ISOSORBIDE MONONITRATE [Concomitant]
  5. DETRALEX [Concomitant]
  6. OMEPRAZOLE [Concomitant]
  7. TERTENSIF [Concomitant]
  8. TROXERUTIN [Concomitant]
  9. CALCIUM GLUCONATE [Concomitant]
  10. CO-TRIMOXAZOLE [Concomitant]

REACTIONS (3)
  - DYSPEPSIA [None]
  - HEPATIC ENZYME INCREASED [None]
  - HEPATITIS [None]
